FAERS Safety Report 14478846 (Version 2)
Quarter: 2019Q1

REPORT INFORMATION
  Report Type: Spontaneous
  Country: US (occurrence: US)
  Receive Date: 20180202
  Receipt Date: 20190214
  Transmission Date: 20190417
  Serious: No
  Sender: FDA-Public Use
  Company Number: US-PFIZER INC-2018043776

PATIENT
  Age: 46 Year
  Sex: Female

DRUGS (5)
  1. GENOTROPIN MQ [Suspect]
     Active Substance: SOMATROPIN
     Indication: VITAMIN D DEFICIENCY
  2. GENOTROPIN MQ [Suspect]
     Active Substance: SOMATROPIN
     Indication: VITAMIN B COMPLEX DEFICIENCY
  3. GENOTROPIN MQ [Suspect]
     Active Substance: SOMATROPIN
     Indication: GROWTH HORMONE DEFICIENCY
     Dosage: 0.2 MG, DAILY
     Dates: start: 201501, end: 20170201
  4. GENOTROPIN MQ [Suspect]
     Active Substance: SOMATROPIN
     Indication: AUTOIMMUNE THYROIDITIS
  5. LEVOTHYROXIN [Concomitant]
     Active Substance: LEVOTHYROXINE
     Dosage: 50 MG, UNK

REACTIONS (1)
  - Bone development abnormal [Unknown]
